FAERS Safety Report 5881742-8 (Version None)
Quarter: 2008Q3

REPORT INFORMATION
  Report Type: 
  Country: None (occurrence: None)
  Receive Date: 20080912
  Receipt Date: 20080709
  Transmission Date: 20090109
  Serious: No
  Sender: FDA-Public Use
  Company Number: US-ABBOTT-08P-163-0461805-00

PATIENT
  Sex: Male
  Weight: 89.438 kg

DRUGS (4)
  1. HUMIRA [Suspect]
     Indication: RHEUMATOID ARTHRITIS
     Route: 058
  2. HUMIRA [Suspect]
     Route: 058
  3. HUMIRA [Suspect]
     Dates: start: 20080708
  4. RABEPRAZOLE SODIUM [Concomitant]
     Indication: GASTRIC DISORDER
     Route: 048

REACTIONS (7)
  - INAPPROPRIATE SCHEDULE OF DRUG ADMINISTRATION [None]
  - INFECTED SKIN ULCER [None]
  - INFECTION [None]
  - PAIN [None]
  - RESPIRATORY TRACT INFECTION [None]
  - SINUSITIS [None]
  - SWELLING [None]
